FAERS Safety Report 11876152 (Version 2)
Quarter: 2015Q4

REPORT INFORMATION
  Report Type: Spontaneous
  Country: AU (occurrence: AU)
  Receive Date: 20151229
  Receipt Date: 20151231
  Transmission Date: 20160305
  Serious: Yes (Hospitalization)
  Sender: FDA-Public Use
  Company Number: AU-SA-2015SA215877

PATIENT
  Age: 67 Year
  Sex: Female
  Weight: 144 kg

DRUGS (6)
  1. LANTUS [Suspect]
     Active Substance: INSULIN GLARGINE
     Indication: DIABETES MELLITUS
     Dosage: DOSE:80 UNIT(S)
     Route: 065
  2. TOUJEO [Suspect]
     Active Substance: INSULIN GLARGINE
     Indication: DIABETES MELLITUS
     Dosage: DOSE:200 UNIT(S)
     Route: 065
     Dates: start: 20151208
  3. SOLOSTAR [Concomitant]
     Active Substance: DEVICE
     Indication: DEVICE THERAPY
     Dates: start: 20151208
  4. SOLOSTAR [Concomitant]
     Active Substance: DEVICE
     Indication: DEVICE THERAPY
     Dates: start: 20151121
  5. WARFARIN [Concomitant]
     Active Substance: WARFARIN
     Dates: start: 201506
  6. TOUJEO [Suspect]
     Active Substance: INSULIN GLARGINE
     Indication: DIABETES MELLITUS
     Dosage: DOSE:180 UNIT(S)
     Route: 065
     Dates: start: 20151121

REACTIONS (4)
  - Circulatory collapse [Unknown]
  - Pulmonary embolism [Unknown]
  - Drug administration error [Unknown]
  - Blood glucose abnormal [Unknown]
